FAERS Safety Report 5352759-7 (Version None)
Quarter: 2007Q2

REPORT INFORMATION
  Report Type: 
  Country: None (occurrence: None)
  Receive Date: 20070518
  Receipt Date: 20070412
  Transmission Date: 20071010
  Serious: No
  Sender: FDA-Public Use
  Company Number: TPA2007A00789

PATIENT
  Sex: Female

DRUGS (1)
  1. ROZEREM [Suspect]
     Dosage: PER ORAL
     Route: 048
     Dates: start: 20070401

REACTIONS (4)
  - DRUG INEFFECTIVE [None]
  - FATIGUE [None]
  - INITIAL INSOMNIA [None]
  - SOMNOLENCE [None]
